FAERS Safety Report 24293644 (Version 1)
Quarter: 2024Q3

REPORT INFORMATION
  Report Type: Spontaneous
  Country: US (occurrence: None)
  Receive Date: 20240906
  Receipt Date: 20240906
  Transmission Date: 20241017
  Serious: No
  Sender: DOMPE FARMACEUTICI
  Company Number: US-FARMAPROD-202402-0450

PATIENT
  Sex: Female

DRUGS (28)
  1. OXERVATE [Suspect]
     Active Substance: CENEGERMIN-BKBJ
     Indication: Neurotrophic keratopathy
     Route: 047
     Dates: start: 20240131
  2. TIMOLOL [Concomitant]
     Active Substance: TIMOLOL
  3. RHOPRESSA [Concomitant]
     Active Substance: NETARSUDIL MESYLATE
  4. AMLODIPINE BESYLATE [Concomitant]
     Active Substance: AMLODIPINE BESYLATE
  5. EYE HEALTH PLUS LUTEIN [Concomitant]
  6. XTAMPZA [Concomitant]
     Active Substance: OXYCODONE
     Dosage: CAPSULE SPRINKLE, EXTENDED RELEASE 12 HOURS
  7. SOLIFENACIN SUCCINATE [Concomitant]
     Active Substance: SOLIFENACIN SUCCINATE
  8. LEVOTHYROXINE SODIUM [Concomitant]
     Active Substance: LEVOTHYROXINE SODIUM
  9. PREDNISONE [Concomitant]
     Active Substance: PREDNISONE
  10. ESTRADIOL [Concomitant]
     Active Substance: ESTRADIOL
     Dosage: (ONCE WEEKLY)
  11. MONTELUKAST SODIUM [Concomitant]
     Active Substance: MONTELUKAST\MONTELUKAST SODIUM
  12. CEPHALEXIN [Concomitant]
     Active Substance: CEPHALEXIN
  13. OMEPRAZOLE [Concomitant]
     Active Substance: OMEPRAZOLE
  14. TORSEMIDE [Concomitant]
     Active Substance: TORSEMIDE
  15. FLUTICASONE PROPIONATE\SALMETEROL XINAFOATE [Concomitant]
     Active Substance: FLUTICASONE PROPIONATE\SALMETEROL XINAFOATE
     Dosage: HYDROFLUOROALKANE
  16. ALBUTEROL SULFATE [Concomitant]
     Active Substance: ALBUTEROL SULFATE
  17. ASPIRIN [Concomitant]
     Active Substance: ASPIRIN
  18. FERROUS SULFATE [Concomitant]
     Active Substance: FERROUS SULFATE
     Dosage: 325(65)
  19. CLARITIN-D NOS [Concomitant]
     Active Substance: LORATADINE\PSEUDOEPHEDRINE SULFATE
     Dosage: 24 HOUR
  20. VITAMIN B12 [Concomitant]
     Active Substance: CYANOCOBALAMIN
  21. CALCIUM [Concomitant]
     Active Substance: CALCIUM
     Dosage: 500(1250)
  22. ATORVASTATIN CALCIUM [Concomitant]
     Active Substance: ATORVASTATIN CALCIUM
  23. ACETAMINOPHEN\HYDROCODONE [Concomitant]
     Active Substance: ACETAMINOPHEN\HYDROCODONE
  24. TRAVOPROST [Concomitant]
     Active Substance: TRAVOPROST
  25. REFRESH CELLUVISC [Concomitant]
     Active Substance: CARBOXYMETHYLCELLULOSE SODIUM
     Dosage: DROPER GEL
  26. RESTASIS [Concomitant]
     Active Substance: CYCLOSPORINE
     Dosage: DROPERETTE
  27. PREDNISOLONE-BROMFENAC [Concomitant]
  28. TIMOLOL MALEATE [Concomitant]
     Active Substance: TIMOLOL MALEATE

REACTIONS (3)
  - Eyelid pain [Unknown]
  - Ocular hyperaemia [Unknown]
  - Eye swelling [Unknown]
